FAERS Safety Report 7232779-8 (Version None)
Quarter: 2011Q1

REPORT INFORMATION
  Report Type: 
  Country: None (occurrence: None)
  Receive Date: 20110119
  Receipt Date: 20110112
  Transmission Date: 20110831
  Serious: Yes (Other)
  Sender: FDA-Public Use
  Company Number: US-ABBOTT-11P-163-0697670-00

PATIENT
  Age: 45 Year
  Sex: Male

DRUGS (14)
  1. ALTERNARIA + HORMODENDRUM [Concomitant]
     Indication: HYPERSENSITIVITY
     Dosage: 1/10
     Dates: start: 20101230, end: 20101230
  2. PENICILLIUM [Concomitant]
     Indication: HYPERSENSITIVITY
     Dosage: 1/10
     Dates: start: 20101230, end: 20101230
  3. PENICILLIUM [Concomitant]
     Dosage: 1/10
     Dates: start: 20110103, end: 20110103
  4. SYNTHROID [Suspect]
     Indication: HYPOTHYROIDISM
     Dosage: 2 TABS 3 DAYS/WK; 1 TAB THE OTHER 4 DAYS
     Dates: start: 20000101
  5. RAGWEED [Concomitant]
     Dosage: 1/500
     Dates: start: 20110103, end: 20110103
  6. ALTERNARIA + HORMODENDRUM [Concomitant]
     Dosage: 1/10
     Dates: start: 20110103, end: 20110103
  7. ALBUTEROL [Concomitant]
     Indication: PRODUCT USED FOR UNKNOWN INDICATION
     Route: 055
  8. MIXED TREES [Interacting]
     Dosage: 1/250
     Dates: start: 20110103, end: 20110103
  9. LIPITOR [Concomitant]
     Indication: BLOOD CHOLESTEROL INCREASED
  10. MIXED TREES [Interacting]
     Indication: HYPERSENSITIVITY
     Dosage: 1/250
     Dates: start: 20101230, end: 20101230
  11. RAGWEED [Concomitant]
     Indication: HYPERSENSITIVITY
     Dosage: 1/500
     Dates: start: 20101230, end: 20101230
  12. MIXED GRASS [Concomitant]
     Indication: HYPERSENSITIVITY
     Dosage: 1/500
     Dates: start: 20101230, end: 20101230
  13. MIXED GRASS [Concomitant]
     Dosage: 1/500
     Dates: start: 20110103, end: 20110103
  14. PRILOSEC [Concomitant]
     Indication: PRODUCT USED FOR UNKNOWN INDICATION

REACTIONS (17)
  - PLATELET COUNT INCREASED [None]
  - ANAPHYLACTIC REACTION [None]
  - URTICARIA [None]
  - WHITE BLOOD CELL COUNT INCREASED [None]
  - BLOOD POTASSIUM INCREASED [None]
  - TACHYCARDIA [None]
  - FLAT CHEST [None]
  - FACIAL PAIN [None]
  - DYSPNOEA [None]
  - HYPERHIDROSIS [None]
  - ASTHENIA [None]
  - FLUSHING [None]
  - INJURY [None]
  - OEDEMA MUCOSAL [None]
  - DIZZINESS [None]
  - SNEEZING [None]
  - ELECTROCARDIOGRAM ABNORMAL [None]
